FAERS Safety Report 13746273 (Version 1)
Quarter: 2017Q3

REPORT INFORMATION
  Report Type: Spontaneous
  Country: US (occurrence: US)
  Receive Date: 20170712
  Receipt Date: 20170712
  Transmission Date: 20171127
  Serious: Yes (Death)
  Sender: FDA-Public Use
  Company Number: None

PATIENT
  Age: 77 Year
  Sex: Male
  Weight: 60.75 kg

DRUGS (13)
  1. COD LIVER OIL [Concomitant]
     Active Substance: COD LIVER OIL
  2. MULTIVITAMIN [Concomitant]
     Active Substance: VITAMINS
  3. DILTIAZEM. [Concomitant]
     Active Substance: DILTIAZEM
  4. GLUCOSAMINE [Concomitant]
     Active Substance: GLUCOSAMINE
  5. DAKLINZA [Suspect]
     Active Substance: DACLATASVIR
     Indication: HEPATITIS C
     Route: 048
     Dates: start: 20161027, end: 20161119
  6. MAGNESIUM [Concomitant]
     Active Substance: MAGNESIUM
  7. RIFAXIMIN [Concomitant]
     Active Substance: RIFAXIMIN
  8. HYDROMORPHONE [Concomitant]
     Active Substance: HYDROMORPHONE
  9. FOLIC ACID. [Concomitant]
     Active Substance: FOLIC ACID
  10. SPIRONOLACTONE. [Concomitant]
     Active Substance: SPIRONOLACTONE
  11. LACTOBACILLUS [Concomitant]
     Active Substance: LACTOBACILLUS ACIDOPHILUS
  12. LACTULOSE. [Concomitant]
     Active Substance: LACTULOSE
  13. SOVALDI [Suspect]
     Active Substance: SOFOSBUVIR
     Indication: HEPATITIS C
     Route: 048
     Dates: start: 20161027, end: 20161119

REACTIONS (3)
  - Dysarthria [None]
  - Back pain [None]
  - Malaise [None]

NARRATIVE: CASE EVENT DATE: 20161119
